FAERS Safety Report 7427064-5 (Version None)
Quarter: 2011Q2

REPORT INFORMATION
  Report Type: 
  Country: None (occurrence: None)
  Receive Date: 20110420
  Receipt Date: 20090930
  Transmission Date: 20111010
  Serious: Yes (Other)
  Sender: FDA-Public Use
  Company Number: US-BAYER-200934733NA

PATIENT
  Age: 67 Year
  Sex: Male
  Weight: 102.9 kg

DRUGS (17)
  1. DOBUTAMINE HCL [Concomitant]
     Dosage: UNK
     Route: 042
     Dates: start: 20031027, end: 20031027
  2. PAPAVERINE [Concomitant]
     Dosage: UNK
     Route: 042
     Dates: start: 20031027, end: 20031027
  3. LIPITOR [Concomitant]
     Dosage: UNK
     Dates: start: 19930501
  4. ANCEF [Concomitant]
     Dosage: 1 G, UNK
     Route: 042
     Dates: start: 20031027, end: 20031027
  5. HEPARIN [Concomitant]
     Dosage: 41000 U, UNK
     Route: 042
     Dates: start: 20031027, end: 20031027
  6. CARDIOPLEGIA [Concomitant]
     Dosage: UNK
     Route: 042
     Dates: start: 20031027, end: 20031027
  7. ACETYLSALICYLIC ACID SRT [Concomitant]
     Dosage: UNK
     Dates: start: 19930101
  8. GLUCOTROL [Concomitant]
     Dosage: UNK
     Dates: start: 19930501
  9. INSULIN [Concomitant]
     Dosage: UNK
     Route: 042
     Dates: start: 20031027, end: 20031027
  10. NEO-SYNEPHRINOL [Concomitant]
     Dosage: UNK
     Route: 042
     Dates: start: 20031027, end: 20031027
  11. TRASYLOL [Suspect]
     Indication: CARDIAC ABLATION
     Dosage: 50 MG/HR, UNK, INFUSION
     Route: 042
     Dates: start: 20031027, end: 20031027
  12. AMOXICILLIN [Concomitant]
     Dosage: 15 YEARS IN THE WINTERS
  13. AMIODARONE [Concomitant]
     Dosage: 300 MG, UNK
     Dates: start: 20031027, end: 20031027
  14. TRASYLOL [Suspect]
     Indication: CORONARY ARTERY BYPASS
     Dosage: 1 ML, UNK, TEST DOSE
     Route: 042
     Dates: start: 20031027, end: 20031027
  15. GLUCOPHAGE [Concomitant]
     Dosage: UNK
     Dates: start: 19930101
  16. PROTAMINE SULFATE [Concomitant]
     Dosage: 38 U, UNK
     Route: 042
     Dates: start: 20030927, end: 20030927
  17. AMIODARONE [Concomitant]
     Dosage: 150 MG, UNK
     Route: 042
     Dates: start: 20031027, end: 20031027

REACTIONS (8)
  - FEAR [None]
  - ANXIETY [None]
  - DEPRESSION [None]
  - RENAL FAILURE [None]
  - PAIN [None]
  - ANHEDONIA [None]
  - INJURY [None]
  - UNEVALUABLE EVENT [None]
